FAERS Safety Report 9109499 (Version 3)
Quarter: 2013Q2

REPORT INFORMATION
  Report Type: Spontaneous
  Country: GB (occurrence: GB)
  Receive Date: 20130222
  Receipt Date: 20130626
  Transmission Date: 20140414
  Serious: Yes (Disabling, Congenital Anomaly)
  Sender: FDA-Public Use
  Company Number: PHHY2013GB016300

PATIENT
  Sex: Female

DRUGS (22)
  1. HALOPERIDOL [Suspect]
     Indication: FOETAL EXPOSURE DURING PREGNANCY
     Route: 064
  2. HALOPERIDOL [Suspect]
     Indication: MATERNAL EXPOSURE BEFORE PREGNANCY
  3. DROLEPTAN [Suspect]
     Indication: FOETAL EXPOSURE DURING PREGNANCY
     Route: 064
  4. DROLEPTAN [Suspect]
     Indication: MATERNAL EXPOSURE BEFORE PREGNANCY
  5. DEPIXOL [Suspect]
     Indication: FOETAL EXPOSURE DURING PREGNANCY
     Route: 064
  6. DEPIXOL [Suspect]
     Indication: MATERNAL EXPOSURE BEFORE PREGNANCY
  7. VALIUM [Suspect]
     Indication: FOETAL EXPOSURE DURING PREGNANCY
     Route: 064
  8. VALIUM [Suspect]
     Indication: MATERNAL EXPOSURE BEFORE PREGNANCY
  9. SPARINE [Suspect]
     Indication: FOETAL EXPOSURE DURING PREGNANCY
     Route: 064
  10. SPARINE [Suspect]
     Indication: MATERNAL EXPOSURE BEFORE PREGNANCY
  11. DISIPAL [Suspect]
     Indication: FOETAL EXPOSURE DURING PREGNANCY
     Route: 064
  12. DISIPAL [Suspect]
     Indication: MATERNAL EXPOSURE BEFORE PREGNANCY
  13. ISTIN [Suspect]
     Indication: FOETAL EXPOSURE DURING PREGNANCY
     Route: 064
  14. ISTIN [Suspect]
     Indication: MATERNAL EXPOSURE BEFORE PREGNANCY
  15. KEMADRIN [Suspect]
     Indication: FOETAL EXPOSURE DURING PREGNANCY
     Route: 064
  16. KEMADRIN [Suspect]
     Indication: MATERNAL EXPOSURE BEFORE PREGNANCY
  17. NORMAXIN [Suspect]
     Indication: FOETAL EXPOSURE DURING PREGNANCY
     Route: 064
  18. NORMAXIN [Suspect]
     Indication: MATERNAL EXPOSURE BEFORE PREGNANCY
  19. RELACTON-C [Suspect]
     Indication: FOETAL EXPOSURE DURING PREGNANCY
     Route: 064
  20. RELACTON-C [Suspect]
     Indication: MATERNAL EXPOSURE BEFORE PREGNANCY
  21. SURMONTIL [Suspect]
     Indication: FOETAL EXPOSURE DURING PREGNANCY
     Route: 064
  22. SURMONTIL [Suspect]
     Indication: MATERNAL EXPOSURE BEFORE PREGNANCY

REACTIONS (3)
  - Pierre Robin syndrome [Unknown]
  - Cleft palate [Unknown]
  - Maternal exposure before pregnancy [Unknown]
